FAERS Safety Report 7305004-7 (Version None)
Quarter: 2011Q1

REPORT INFORMATION
  Report Type: 
  Country: None (occurrence: None)
  Receive Date: 20110222
  Receipt Date: 20100604
  Transmission Date: 20110831
  Serious: No
  Sender: FDA-Public Use
  Company Number: US-PFIZER INC-2010070486

PATIENT
  Sex: Female

DRUGS (2)
  1. XALATAN [Suspect]
     Dosage: 1 GTT, DAILY
     Route: 047
  2. ALPHAGAN [Concomitant]
     Dosage: 1 GTT, 2X/DAY

REACTIONS (1)
  - ERYTHEMA [None]
